FAERS Safety Report 21697883 (Version 1)
Quarter: 2022Q4

REPORT INFORMATION
  Report Type: Spontaneous
  Country: GB (occurrence: GB)
  Receive Date: 20221208
  Receipt Date: 20221208
  Transmission Date: 20230112
  Serious: No
  Sender: FDA-Public Use
  Company Number: None

PATIENT
  Age: 42 Year
  Sex: Male
  Weight: 103.3 kg

DRUGS (10)
  1. TOLVAPTAN [Suspect]
     Active Substance: TOLVAPTAN
     Indication: Congenital cystic kidney disease
     Dosage: 45 MILLIGRAM TABLET (UNCOATED, ORAL)
     Route: 048
     Dates: start: 20170628
  2. TOLVAPTAN [Suspect]
     Active Substance: TOLVAPTAN
     Dosage: 15 MILLIGRAM TABLET (UNCOATED, ORAL)
     Route: 048
     Dates: start: 20170628
  3. TOLVAPTAN [Suspect]
     Active Substance: TOLVAPTAN
     Dosage: 60 MILLIGRAM TABLET (UNCOATED, ORAL)
     Route: 048
     Dates: start: 20171024
  4. TOLVAPTAN [Suspect]
     Active Substance: TOLVAPTAN
     Dosage: 30 MILLIGRAM TABLET (UNCOATED, ORAL)
     Route: 048
     Dates: start: 20171024
  5. TOLVAPTAN [Suspect]
     Active Substance: TOLVAPTAN
     Dosage: 90 MILLIGRAM TABLET (UNCOATED, ORAL)
     Route: 048
     Dates: start: 20171221
  6. TOLVAPTAN [Suspect]
     Active Substance: TOLVAPTAN
     Dosage: 30 MILLIGRAM TABLET (UNCOATED, ORAL)
     Route: 048
     Dates: start: 20171221
  7. LOSARTAN [Concomitant]
     Active Substance: LOSARTAN
     Indication: Product used for unknown indication
     Dosage: 100 MILLIGRAM, QD
     Route: 048
     Dates: start: 20170130, end: 20180426
  8. LOSARTAN [Concomitant]
     Active Substance: LOSARTAN
     Dosage: 150 MILLIGRAM, QD
     Route: 048
     Dates: start: 20180426, end: 20180702
  9. LOSARTAN [Concomitant]
     Active Substance: LOSARTAN
     Dosage: 100 MILLIGRAM, QD
     Route: 048
     Dates: start: 20180702, end: 20180831
  10. LOSARTAN [Concomitant]
     Active Substance: LOSARTAN
     Dosage: 150 MILLIGRAM, QD
     Route: 048
     Dates: start: 20180901

REACTIONS (3)
  - Nocturia [Recovered/Resolved]
  - Polydipsia [Recovered/Resolved]
  - Polyuria [Recovered/Resolved]

NARRATIVE: CASE EVENT DATE: 20170705
